FAERS Safety Report 18346273 (Version 5)
Quarter: 2021Q2

REPORT INFORMATION
  Report Type: Report from Study
  Country: DE (occurrence: DE)
  Receive Date: 20201006
  Receipt Date: 20210529
  Transmission Date: 20210717
  Serious: Yes (Hospitalization)
  Sender: FDA-Public Use
  Company Number: DE-ROCHE-2683812

PATIENT
  Age: 68 Year
  Sex: Female
  Weight: 76 kg

DRUGS (7)
  1. TRASTUZUMAB. [Suspect]
     Active Substance: TRASTUZUMAB
     Indication: BREAST CANCER METASTATIC
     Dosage: LOADING DOSE?LAST DOSE PRIOR TO SAE/AESI: 22/SEP/2020
     Route: 042
     Dates: start: 20200922
  2. XGEVA [Concomitant]
     Active Substance: DENOSUMAB
     Dates: start: 20200909
  3. RIBOCICLIB. [Suspect]
     Active Substance: RIBOCICLIB
     Indication: BREAST CANCER METASTATIC
     Dosage: DATE OF LAST DOSE TO PRIOR TO EVENT IS 17/OCT/2020
     Route: 048
     Dates: start: 20200927
  4. PERTUZUMAB. [Suspect]
     Active Substance: PERTUZUMAB
     Indication: BREAST CANCER METASTATIC
     Dosage: LAST DOSE PRIOR TO SAE/AESI: 22/SEP/2020
     Route: 042
     Dates: start: 20200922
  5. FENISTIL [Concomitant]
     Active Substance: DIMETHINDENE
     Dates: start: 20201027
  6. ENTRESTO [Concomitant]
     Active Substance: SACUBITRIL\VALSARTAN
     Dosage: 97MG/103MG
     Dates: start: 20190901
  7. BRIMICA GENUAIR [Concomitant]
     Active Substance: ACLIDINIUM BROMIDE\FORMOTEROL FUMARATE
     Dosage: 340 MICROGRAM/12 MICROGRAM
     Dates: start: 20190701

REACTIONS (2)
  - Hyponatraemia [Recovered/Resolved]
  - Pulmonary hypertension [Recovered/Resolved]

NARRATIVE: CASE EVENT DATE: 20200922
